FAERS Safety Report 20803170 (Version 2)
Quarter: 2022Q2

REPORT INFORMATION
  Report Type: Spontaneous
  Country: US (occurrence: None)
  Receive Date: 20220509
  Receipt Date: 20220625
  Transmission Date: 20220721
  Serious: Yes (Hospitalization)
  Sender: FDA-Public Use
  Company Number: US-ROCHE-3087509

PATIENT
  Sex: Female

DRUGS (2)
  1. ESBRIET [Suspect]
     Active Substance: PIRFENIDONE
     Indication: Pulmonary fibrosis
     Dosage: TAKE 1 TABLET THREE TIMES A DAY
     Route: 048
     Dates: start: 202003
  2. CEFDINIR [Concomitant]
     Active Substance: CEFDINIR

REACTIONS (1)
  - Pulmonary oedema [Not Recovered/Not Resolved]
